FAERS Safety Report 10597749 (Version 1)
Quarter: 2014Q4

REPORT INFORMATION
  Report Type: Spontaneous
  Country: US (occurrence: None)
  Receive Date: 20141030
  Receipt Date: 20141030
  Transmission Date: 20150529
  Serious: Yes (Hospitalization)
  Sender: FDA-Public Use
  Company Number: PHEH2014US002481

PATIENT
  Age: 2 Year
  Sex: Female
  Weight: 14 kg

DRUGS (1)
  1. TRILEPTAL [Suspect]
     Active Substance: OXCARBAZEPINE
     Indication: EPILEPSY
     Dosage: 5.5 ML DAILY (2.5 ML IN MORNING AND 3 ML IN EVENING)
     Route: 048

REACTIONS (7)
  - Incorrect product storage [None]
  - Drug level decreased [None]
  - Vomiting [None]
  - Alanine aminotransferase increased [None]
  - Drug ineffective [None]
  - Seizure [None]
  - Aspartate aminotransferase increased [None]

NARRATIVE: CASE EVENT DATE: 20140216
